FAERS Safety Report 9657099 (Version 1)
Quarter: 2013Q4

REPORT INFORMATION
  Report Type: Spontaneous
  Country: IT (occurrence: IT)
  Receive Date: 20131030
  Receipt Date: 20131030
  Transmission Date: 20140711
  Serious: Yes (Hospitalization)
  Sender: FDA-Public Use
  Company Number: IT-TEVA-440217ISR

PATIENT
  Age: 58 Year
  Sex: Male

DRUGS (3)
  1. AMOXICILLIN W/CLAVULANIC ACID [Suspect]
     Indication: PERIODONTAL DISEASE
     Dosage: AMOXICILLIN/CLAVULANIC ACID 875/125MG PILL
     Route: 065
  2. NEBIVOLOL, HYDROCHLOROTHIAZIDE [Concomitant]
     Route: 065
  3. DOXAZOSIN [Concomitant]
     Route: 065

REACTIONS (1)
  - Kounis syndrome [Recovered/Resolved]
